FAERS Safety Report 8146077-1 (Version None)
Quarter: 2012Q1

REPORT INFORMATION
  Report Type: 
  Country: None (occurrence: None)
  Receive Date: 20120217
  Receipt Date: 20111102
  Transmission Date: 20120608
  Serious: No
  Sender: FDA-Public Use
  Company Number: US-ABBOTT-11P-163-0870692-00

PATIENT
  Sex: Male
  Weight: 120.31 kg

DRUGS (7)
  1. NALODOL [Concomitant]
     Indication: PRODUCT USED FOR UNKNOWN INDICATION
  2. EFFIENT [Concomitant]
     Indication: PRODUCT USED FOR UNKNOWN INDICATION
  3. SIMCOR [Suspect]
     Indication: STENT PLACEMENT
     Dosage: 1000/20 MG AT BEDTIME
     Route: 048
     Dates: start: 20110501
  4. SIMCOR [Suspect]
     Indication: CORONARY ARTERY DISEASE
  5. ASPIRIN [Concomitant]
     Indication: PRODUCT USED FOR UNKNOWN INDICATION
  6. LISINOPRIL [Concomitant]
     Indication: PRODUCT USED FOR UNKNOWN INDICATION
     Dosage: 10 MG
  7. SIMCOR [Suspect]
     Indication: ACUTE MYOCARDIAL INFARCTION
     Dosage: 500/20 MG AT BEDTIME
     Route: 048
     Dates: start: 20091101

REACTIONS (4)
  - ABDOMINAL DISCOMFORT [None]
  - HAEMORRHAGE [None]
  - INCREASED TENDENCY TO BRUISE [None]
  - SKIN ATROPHY [None]
